FAERS Safety Report 8275356-2 (Version None)
Quarter: 2012Q2

REPORT INFORMATION
  Report Type: 
  Country: None (occurrence: None)
  Receive Date: 20120411
  Receipt Date: 20120330
  Transmission Date: 20120825
  Serious: Yes (Disabling, Other)
  Sender: FDA-Public Use
  Company Number: US-ELI_LILLY_AND_COMPANY-US201101003118

PATIENT
  Sex: Male

DRUGS (12)
  1. FLEXERIL [Concomitant]
  2. ANALGESICS [Concomitant]
     Indication: BACK PAIN
  3. FORTEO [Suspect]
     Dosage: 20 UG, QD
     Route: 058
  4. MORPHINE [Concomitant]
  5. OXYCODONE HCL [Concomitant]
  6. ZOCOR [Concomitant]
  7. METFORMIN HCL [Concomitant]
  8. FORTEO [Suspect]
     Dosage: 20 UG, QD
  9. CYMBALTA [Concomitant]
  10. FORTEO [Suspect]
     Indication: OSTEOPOROSIS
     Dosage: 20 UG, QD
     Route: 058
     Dates: start: 20101001
  11. FORTEO [Suspect]
     Dosage: 20 UG, QD
     Route: 058
  12. XANAX [Concomitant]

REACTIONS (9)
  - BLOOD TESTOSTERONE DECREASED [None]
  - LOWER EXTREMITY MASS [None]
  - BACK PAIN [None]
  - GAIT DISTURBANCE [None]
  - SOFT TISSUE INFLAMMATION [None]
  - OSTEONECROSIS [None]
  - OSTEOMYELITIS [None]
  - MALAISE [None]
  - SOFT TISSUE INFECTION [None]
